FAERS Safety Report 10748295 (Version 2)
Quarter: 2015Q2

REPORT INFORMATION
  Report Type: Report from Study
  Country: US (occurrence: None)
  Receive Date: 20150120
  Receipt Date: 20150420
  Transmission Date: 20150821
  Serious: Yes (Other)
  Sender: FDA-Public Use
  Company Number: AEGR000779

PATIENT
  Age: 77 Year
  Sex: Male
  Weight: 78 kg

DRUGS (6)
  1. JANUVIA [Concomitant]
     Active Substance: SITAGLIPTIN PHOSPHATE
  2. DIOVAN [Concomitant]
     Active Substance: VALSARTAN
  3. AMLODIPINE (AMLODIPINE BESILATE) [Concomitant]
  4. VALSARTAN. [Concomitant]
     Active Substance: VALSARTAN
  5. GLIMEPIRIDE. [Concomitant]
     Active Substance: GLIMEPIRIDE
  6. JUXTAPID [Suspect]
     Active Substance: LOMITAPIDE MESYLATE
     Indication: TYPE IIA HYPERLIPIDAEMIA
     Route: 048
     Dates: start: 20140904, end: 20141201

REACTIONS (5)
  - Blood glucose increased [None]
  - Low density lipoprotein increased [None]
  - Weight decreased [None]
  - Glycosylated haemoglobin increased [None]
  - Hepatic enzyme increased [None]

NARRATIVE: CASE EVENT DATE: 20141031
